FAERS Safety Report 10449989 (Version 1)
Quarter: 2014Q3

REPORT INFORMATION
  Report Type: Spontaneous
  Country: US (occurrence: US)
  Receive Date: 20140912
  Receipt Date: 20140912
  Transmission Date: 20150326
  Serious: Yes (Other)
  Sender: FDA-Public Use
  Company Number: US-009507513-1409USA002381

PATIENT
  Sex: Female

DRUGS (2)
  1. REMERON [Suspect]
     Active Substance: MIRTAZAPINE
     Dosage: UNK
     Route: 048
  2. REMERON [Suspect]
     Active Substance: MIRTAZAPINE
     Indication: DEPRESSION
     Dosage: 30 MG, UNK
     Route: 048

REACTIONS (8)
  - Laryngitis [Unknown]
  - Gastrointestinal tube insertion [Unknown]
  - Wrong technique in drug usage process [Unknown]
  - Adverse event [Unknown]
  - Chemotherapy [Unknown]
  - Aspiration [Unknown]
  - Surgery [Unknown]
  - Drug ineffective [Unknown]
